FAERS Safety Report 5869877-7 (Version None)
Quarter: 2008Q3

REPORT INFORMATION
  Report Type: 
  Country: None (occurrence: None)
  Receive Date: 20080904
  Receipt Date: 20080819
  Transmission Date: 20090109
  Serious: Yes (Other)
  Sender: FDA-Public Use
  Company Number: PHHY2008JP16899

PATIENT
  Age: 2 Year

DRUGS (1)
  1. VOLTAREN [Suspect]
     Dosage: 75 MG/DAY
     Route: 048
     Dates: start: 20080730, end: 20080730

REACTIONS (1)
  - ACCIDENTAL EXPOSURE [None]
